FAERS Safety Report 5245623-5 (Version None)
Quarter: 2007Q1

REPORT INFORMATION
  Report Type: 
  Country: None (occurrence: None)
  Receive Date: 20070223
  Receipt Date: 20070216
  Transmission Date: 20070707
  Serious: Yes (Hospitalization)
  Sender: FDA-Public Use
  Company Number: US-BOEHRINGER INGELHEIM PHARMACEUTICALS, INC.-2007-BP-00460BP

PATIENT
  Sex: Male

DRUGS (15)
  1. FLOMAX [Suspect]
     Indication: PROSTATE CANCER
     Route: 048
  2. FLOMAX [Suspect]
     Indication: DYSURIA
  3. LISINOPRIL [Concomitant]
  4. FELODIPINE [Concomitant]
  5. GABAPENTIN [Concomitant]
  6. AMITRIPTYLINE HCL [Concomitant]
  7. OMEPRAZOLE [Concomitant]
  8. CYCLOBENZAPRINE HCL [Concomitant]
  9. SIMVASTATIN [Concomitant]
  10. DARVOCET-N 100 [Concomitant]
  11. VENLAFAXINE NCL [Concomitant]
  12. METHADONE HCL [Concomitant]
  13. ASPIRIN [Concomitant]
  14. TRELSTAR [Concomitant]
  15. CASODEX [Concomitant]

REACTIONS (4)
  - BLOOD PRESSURE DECREASED [None]
  - DIZZINESS [None]
  - FALL [None]
  - SYNCOPE [None]
